FAERS Safety Report 7728343-4 (Version None)
Quarter: 2011Q3

REPORT INFORMATION
  Report Type: 
  Country: None (occurrence: None)
  Receive Date: 20110905
  Receipt Date: 20110901
  Transmission Date: 20111222
  Serious: Yes (Death)
  Sender: FDA-Public Use
  Company Number: PHHY2011US50196

PATIENT
  Sex: Female
  Weight: 65 kg

DRUGS (7)
  1. FLEXERIL [Concomitant]
     Indication: MUSCLE SPASMS
     Dosage: 10 MG, Q8H
     Route: 048
  2. HYDROXYUREA [Concomitant]
     Indication: SICKLE CELL ANAEMIA
     Dosage: 1000 MG, QD
     Route: 048
  3. LOVENOX [Concomitant]
     Indication: SUPERIOR VENA CAVA SYNDROME
     Dosage: 60 MG, QD
     Route: 058
  4. ASPIRIN [Concomitant]
     Indication: SUPERIOR VENA CAVA SYNDROME
     Dosage: 81 MG, QD
     Route: 048
  5. FOLIC ACID [Concomitant]
     Indication: SICKLE CELL ANAEMIA
     Dosage: 1 MG, QD
     Route: 048
  6. EXJADE [Suspect]
     Indication: IRON OVERLOAD
     Dosage: 500 MG, QOD
     Route: 048
     Dates: start: 20080402, end: 20110520
  7. NEXIUM [Concomitant]
     Dosage: 20 MG, QD
     Route: 048

REACTIONS (1)
  - DEATH [None]
